FAERS Safety Report 9928634 (Version 1)
Quarter: 2014Q1

REPORT INFORMATION
  Report Type: Spontaneous
  Country: IL (occurrence: IL)
  Receive Date: 20140227
  Receipt Date: 20140227
  Transmission Date: 20141002
  Serious: Yes (Hospitalization)
  Sender: FDA-Public Use
  Company Number: IL-PFIZER INC-2014054854

PATIENT
  Age: 62 Year
  Sex: Female

DRUGS (9)
  1. INLYTA [Suspect]
     Indication: RENAL CELL CARCINOMA
     Dosage: 5 MG, 2X/DAY, CUMULATIVE DOSE 40 MG
     Route: 048
     Dates: start: 20140220
  2. AREDIA [Concomitant]
  3. OPTALGIN [Concomitant]
  4. DEXAMETHASONE [Concomitant]
  5. TARGIN [Concomitant]
  6. PERCOCET [Concomitant]
  7. VASODIP [Concomitant]
  8. ENALADEX [Concomitant]
  9. LANSOPRAZOLE [Concomitant]

REACTIONS (1)
  - Pain [Unknown]
